FAERS Safety Report 24652779 (Version 2)
Quarter: 2024Q4

REPORT INFORMATION
  Report Type: Report from Study
  Country: US (occurrence: US)
  Receive Date: 20241122
  Receipt Date: 20241126
  Transmission Date: 20250115
  Serious: Yes (Hospitalization, Other)
  Sender: EISAI
  Company Number: US-Eisai-EC-2024-179231

PATIENT
  Age: 68 Year

DRUGS (2)
  1. LENVATINIB [Suspect]
     Active Substance: LENVATINIB
     Indication: Anaplastic thyroid cancer
     Dosage: FREQUENCY AND DOSE : UNKNOWN
     Route: 048
     Dates: end: 20241112
  2. PEMBROLIZUMAB [Suspect]
     Active Substance: PEMBROLIZUMAB
     Indication: Anaplastic thyroid cancer
     Dosage: DOSE, ROUTE, AND FREQUENCY: UNKNOWN
     Route: 050

REACTIONS (3)
  - Dysphagia [Unknown]
  - Stomatitis [Unknown]
  - Dehydration [Unknown]

NARRATIVE: CASE EVENT DATE: 20241114
